FAERS Safety Report 7656729-5 (Version None)
Quarter: 2011Q3

REPORT INFORMATION
  Report Type: 
  Country: None (occurrence: None)
  Receive Date: 20110801
  Receipt Date: 20110725
  Transmission Date: 20111222
  Serious: Yes (Death)
  Sender: FDA-Public Use
  Company Number: 2011SP034792

PATIENT
  Age: 77 Year
  Sex: Male

DRUGS (4)
  1. PROCRIT [Concomitant]
  2. VICTRELIS [Suspect]
     Indication: HEPATITIS C
     Dosage: 4 DF;TID;PO
     Route: 048
     Dates: start: 20110714
  3. RIBAVIRIN [Suspect]
     Indication: PRODUCT USED FOR UNKNOWN INDICATION
  4. PEGASYS [Suspect]
     Indication: PRODUCT USED FOR UNKNOWN INDICATION

REACTIONS (1)
  - DEATH [None]
